FAERS Safety Report 17144272 (Version 1)
Quarter: 2020Q3

REPORT INFORMATION
  Report Type: Report from Study
  Country: ES (occurrence: ES)
  Receive Date: 20191212
  Receipt Date: 20191212
  Transmission Date: 20201105
  Serious: Yes (Hospitalization)
  Sender: FDA-Public Use
  Company Number: ES-JNJFOC-20191201249

PATIENT
  Age: 69 Year
  Sex: Female
  Weight: 89 kg

DRUGS (10)
  1. ERDAFITINIB. [Suspect]
     Active Substance: ERDAFITINIB
     Dosage: CYCLE 2 DAY 1
     Route: 048
     Dates: start: 20191021
  2. JNJ?63723283 [Suspect]
     Active Substance: CETRELIMAB
     Dosage: CYCLE 3 DAY 1
     Route: 042
     Dates: start: 20191118
  3. ERDAFITINIB. [Suspect]
     Active Substance: ERDAFITINIB
     Dosage: CYCLE 1 DAY 15
     Route: 048
     Dates: start: 20191007
  4. JNJ?63723283 [Suspect]
     Active Substance: CETRELIMAB
     Dosage: CYCLE 1 DAY 15
     Route: 042
     Dates: start: 20191007
  5. JNJ?63723283 [Suspect]
     Active Substance: CETRELIMAB
     Indication: TRANSITIONAL CELL CARCINOMA
     Dosage: CYCLE 1 DAY 1
     Route: 042
     Dates: start: 20190923, end: 20191118
  6. ERDAFITINIB. [Suspect]
     Active Substance: ERDAFITINIB
     Indication: TRANSITIONAL CELL CARCINOMA
     Dosage: CYCLE 1 DAY 1
     Route: 048
     Dates: start: 20190923, end: 20191201
  7. JNJ?63723283 [Suspect]
     Active Substance: CETRELIMAB
     Dosage: CYCLE 2 DAY 1
     Route: 042
     Dates: start: 20191021
  8. ERDAFITINIB. [Suspect]
     Active Substance: ERDAFITINIB
     Dosage: CYCLE 2 DAY 15
     Route: 048
     Dates: start: 20191104
  9. ERDAFITINIB. [Suspect]
     Active Substance: ERDAFITINIB
     Dosage: CYCLE 3 DAY 1
     Route: 048
     Dates: start: 20191118
  10. JNJ?63723283 [Suspect]
     Active Substance: CETRELIMAB
     Dosage: CYCLE 2 DAY 15
     Route: 042
     Dates: start: 20191104

REACTIONS (1)
  - Pneumonia [Recovering/Resolving]

NARRATIVE: CASE EVENT DATE: 20191128
